FAERS Safety Report 16859594 (Version 1)
Quarter: 2019Q3

REPORT INFORMATION
  Report Type: Spontaneous
  Country: US (occurrence: US)
  Receive Date: 20190927
  Receipt Date: 20190927
  Transmission Date: 20191005
  Serious: Yes (Other)
  Sender: FDA-Public Use
  Company Number: US-ROCHE-2421851

PATIENT
  Age: 59 Year
  Sex: Male

DRUGS (2)
  1. ACTILYSE [Suspect]
     Active Substance: ALTEPLASE
     Indication: EMBOLISM
     Route: 042
  2. ACTILYSE [Suspect]
     Active Substance: ALTEPLASE
     Dosage: 90 MG TISSUE PLASMINOGEN ACTIVATOR OVER 60 MINUTES (90 MG,1 IN 1 ONCE)
     Route: 042

REACTIONS (2)
  - Hypotension [Unknown]
  - Coagulopathy [Unknown]
